FAERS Safety Report 6934746-8 (Version None)
Quarter: 2010Q3

REPORT INFORMATION
  Report Type: 
  Country: None (occurrence: None)
  Receive Date: 20100820
  Receipt Date: 20100812
  Transmission Date: 20110219
  Serious: Yes (Other)
  Sender: FDA-Public Use
  Company Number: US-B.I. PHARMACEUTICALS,INC./RIDGEFIELD-2010-BP-09180BP

PATIENT
  Sex: Female

DRUGS (2)
  1. VIRAMUNE [Suspect]
     Indication: HIV INFECTION
     Dosage: 200 MG
     Route: 048
     Dates: start: 20100629, end: 20100716
  2. VIRAMUNE [Suspect]
     Dosage: 400 MG
     Route: 048
     Dates: start: 20100716, end: 20100717

REACTIONS (1)
  - STEVENS-JOHNSON SYNDROME [None]
